FAERS Safety Report 8215670 (Version 6)
Quarter: 2013Q4

REPORT INFORMATION
  Report Type: Spontaneous
  Country: US (occurrence: US)
  Receive Date: 20111031
  Receipt Date: 20131126
  Transmission Date: 20140711
  Serious: Yes (Hospitalization, Congenital Anomaly)
  Sender: FDA-Public Use
  Company Number: US-GLAXOSMITHKLINE-A0951259A

PATIENT
  Age: 0 Day
  Sex: Male
  Weight: 2.2 kg

DRUGS (9)
  1. PAXIL CR [Suspect]
     Indication: DEPRESSION
     Dosage: 25MG UNKNOWN
     Route: 064
     Dates: start: 200306, end: 200403
  2. PAROXETINE HCL [Suspect]
     Indication: DEPRESSION
     Dosage: 20MG UNKNOWN
     Route: 064
     Dates: start: 200404, end: 200412
  3. PAXIL [Suspect]
     Indication: DEPRESSION
     Dosage: 20MG PER DAY
     Route: 064
     Dates: start: 20040330
  4. PRENATAL VITAMIN [Concomitant]
  5. REGLAN [Concomitant]
  6. ZANTAC [Concomitant]
  7. IRON SULFATE [Concomitant]
  8. FIORICET [Concomitant]
     Dates: start: 20040712
  9. TYLENOL [Concomitant]

REACTIONS (5)
  - Coarctation of the aorta [Unknown]
  - Ventricular septal defect [Unknown]
  - Congenital aortic valve incompetence [Unknown]
  - Atrial septal defect [Unknown]
  - Foetal exposure during pregnancy [Unknown]
